FAERS Safety Report 7167543-1 (Version None)
Quarter: 2010Q4

REPORT INFORMATION
  Report Type: 
  Country: None (occurrence: None)
  Receive Date: 20101216
  Receipt Date: 20100322
  Transmission Date: 20110411
  Serious: No
  Sender: FDA-Public Use
  Company Number: A0851308A

PATIENT
  Age: 65 Year
  Sex: Male

DRUGS (1)
  1. NICOTINE POLACRILEX [Suspect]

REACTIONS (2)
  - DIZZINESS [None]
  - NAUSEA [None]
